FAERS Safety Report 21447350 (Version 1)
Quarter: 2022Q4

REPORT INFORMATION
  Report Type: Spontaneous
  Country: DE (occurrence: DE)
  Receive Date: 20221012
  Receipt Date: 20221012
  Transmission Date: 20230112
  Serious: Yes (Death, Hospitalization)
  Sender: FDA-Public Use
  Company Number: DE-ACRAF SpA-2022-028386

PATIENT
  Age: 45 Year
  Sex: Female

DRUGS (17)
  1. ZONISAMIDE [Suspect]
     Active Substance: ZONISAMIDE
     Indication: Product used for unknown indication
     Dosage: UNK
     Route: 065
  2. CENOBAMATE [Suspect]
     Active Substance: CENOBAMATE
     Indication: Partial seizures
     Dosage: UNK
     Route: 065
  3. CENOBAMATE [Suspect]
     Active Substance: CENOBAMATE
     Dosage: UNK
     Route: 065
  4. CENOBAMATE [Suspect]
     Active Substance: CENOBAMATE
     Dosage: UNK
     Route: 065
  5. CENOBAMATE [Suspect]
     Active Substance: CENOBAMATE
     Dosage: UNK
     Route: 065
  6. CENOBAMATE [Suspect]
     Active Substance: CENOBAMATE
     Dosage: UNK
     Route: 065
  7. CENOBAMATE [Suspect]
     Active Substance: CENOBAMATE
     Dosage: UNK
     Route: 048
     Dates: start: 20220321
  8. CENOBAMATE [Suspect]
     Active Substance: CENOBAMATE
     Dosage: UNK
     Route: 065
     Dates: start: 20220707, end: 20220714
  9. CENOBAMATE [Suspect]
     Active Substance: CENOBAMATE
     Dosage: UNK
     Route: 065
  10. CENOBAMATE [Suspect]
     Active Substance: CENOBAMATE
     Dosage: UNK
     Route: 065
  11. CENOBAMATE [Suspect]
     Active Substance: CENOBAMATE
     Dosage: UNK
     Route: 065
  12. BRIVIACT [Suspect]
     Active Substance: BRIVARACETAM
     Indication: Product used for unknown indication
     Dosage: UNK
     Route: 065
  13. VIMPAT [Suspect]
     Active Substance: LACOSAMIDE
     Indication: Product used for unknown indication
     Dosage: UNK
     Route: 065
  14. TRIUMEQ [Suspect]
     Active Substance: ABACAVIR SULFATE\DOLUTEGRAVIR SODIUM\LAMIVUDINE
     Indication: Product used for unknown indication
     Dosage: UNK
     Route: 065
  15. DESOGESTREL [Concomitant]
     Active Substance: DESOGESTREL
     Dosage: UNK
     Route: 065
  16. PROPANOL (PROPRANOLOL HYDROCHLORIDE) [Concomitant]
     Active Substance: PROPRANOLOL HYDROCHLORIDE
     Dosage: UNK
     Route: 065
  17. FOLIC ACID [Concomitant]
     Active Substance: FOLIC ACID
     Dosage: UNK
     Route: 065

REACTIONS (1)
  - Pulmonary embolism [Fatal]

NARRATIVE: CASE EVENT DATE: 20220714
